FAERS Safety Report 10741082 (Version 1)
Quarter: 2015Q1

REPORT INFORMATION
  Report Type: Spontaneous
  Country: DE (occurrence: DE)
  Receive Date: 20150127
  Receipt Date: 20150127
  Transmission Date: 20150721
  Serious: Yes (Hospitalization, Other)
  Sender: FDA-Public Use
  Company Number: DE-ABBVIE-15P-062-1336821-00

PATIENT
  Age: 1 Day
  Sex: Female

DRUGS (4)
  1. LEVETIRACETAM. [Suspect]
     Active Substance: LEVETIRACETAM
     Indication: MATERNAL EXPOSURE TIMING UNSPECIFIED
     Route: 064
  2. PHENYTOIN. [Suspect]
     Active Substance: PHENYTOIN
     Indication: MATERNAL EXPOSURE TIMING UNSPECIFIED
     Route: 064
  3. VALPROATE SODIUM. [Suspect]
     Active Substance: VALPROATE SODIUM
     Indication: MATERNAL EXPOSURE TIMING UNSPECIFIED
     Route: 064
  4. CLONAZEPAM. [Suspect]
     Active Substance: CLONAZEPAM
     Indication: MATERNAL EXPOSURE TIMING UNSPECIFIED
     Route: 064

REACTIONS (5)
  - Respiratory disorder neonatal [Recovered/Resolved]
  - Bradycardia neonatal [Recovered/Resolved]
  - Feeding disorder neonatal [Recovered/Resolved]
  - Premature baby [Unknown]
  - Foetal exposure during pregnancy [Unknown]

NARRATIVE: CASE EVENT DATE: 20141126
